FAERS Safety Report 6233058-8 (Version None)
Quarter: 2009Q2

REPORT INFORMATION
  Report Type: 
  Country: None (occurrence: None)
  Receive Date: 20090617
  Receipt Date: 20090605
  Transmission Date: 20091009
  Serious: Yes (Other)
  Sender: FDA-Public Use
  Company Number: US-ALEXION-A200900455

PATIENT

DRUGS (1)
  1. SOLIRIS [Suspect]
     Dosage: UNK

REACTIONS (2)
  - HAEMOLYSIS [None]
  - PNEUMONIA [None]
